FAERS Safety Report 9378432 (Version 3)
Quarter: 2014Q1

REPORT INFORMATION
  Report Type: Spontaneous
  Country: IL (occurrence: IL)
  Receive Date: 20130701
  Receipt Date: 20140303
  Transmission Date: 20141002
  Serious: Yes (Other)
  Sender: FDA-Public Use
  Company Number: IL-AMGEN-ISRSP2013045546

PATIENT
  Sex: Male

DRUGS (1)
  1. NPLATE [Suspect]
     Indication: IMMUNE THROMBOCYTOPENIC PURPURA
     Dosage: 10 MUG/KG, UNK
     Route: 065
     Dates: start: 20100808

REACTIONS (3)
  - Therapeutic response decreased [Unknown]
  - Platelet count increased [Unknown]
  - Treatment noncompliance [Unknown]
